FAERS Safety Report 8222438-7 (Version None)
Quarter: 2012Q1

REPORT INFORMATION
  Report Type: 
  Country: None (occurrence: None)
  Receive Date: 20120320
  Receipt Date: 20120308
  Transmission Date: 20120608
  Serious: Yes (Hospitalization)
  Sender: FDA-Public Use
  Company Number: US-ELI_LILLY_AND_COMPANY-US201203003138

PATIENT
  Sex: Male

DRUGS (1)
  1. HUMATROPE [Suspect]
     Indication: GROWTH RETARDATION
     Dosage: 1.4 MG, QD
     Dates: start: 20090101, end: 20110801

REACTIONS (4)
  - AGGRESSION [None]
  - ATTENTION DEFICIT/HYPERACTIVITY DISORDER [None]
  - OPPOSITIONAL DEFIANT DISORDER [None]
  - ANXIETY DISORDER [None]
